FAERS Safety Report 9716393 (Version 2)
Quarter: 2014Q1

REPORT INFORMATION
  Report Type: Report from Study
  Country: US (occurrence: US)
  Receive Date: 20131127
  Receipt Date: 20140206
  Transmission Date: 20141002
  Serious: Yes (Other)
  Sender: FDA-Public Use
  Company Number: US-NAPPMUNDI-USA-2013-0109049

PATIENT
  Sex: Female

DRUGS (2)
  1. OXY CR TAB [Suspect]
     Indication: PAIN
     Dosage: UNK
     Route: 048
     Dates: start: 1998
  2. OXY CR TAB [Suspect]
     Dosage: 80 MG EVERY 12H,  3TO 5 PER DAY (VARIABLE DOSE)
     Route: 048
     Dates: start: 200406

REACTIONS (1)
  - Osteoporosis [Not Recovered/Not Resolved]
